FAERS Safety Report 14210582 (Version 1)
Quarter: 2017Q4

REPORT INFORMATION
  Report Type: Spontaneous
  Country: TR (occurrence: TR)
  Receive Date: 20171121
  Receipt Date: 20171121
  Transmission Date: 20180321
  Serious: Yes (Hospitalization)
  Sender: FDA-Public Use
  Company Number: TR-ABBVIE-17P-161-1877354-00

PATIENT
  Age: 63 Year
  Sex: Female
  Weight: 55 kg

DRUGS (2)
  1. EXVIERA [Suspect]
     Active Substance: DASABUVIR
     Indication: HEPATITIS C
     Route: 048
     Dates: start: 201612, end: 20170213
  2. VIEKIRAX [Suspect]
     Active Substance: OMBITASVIR\PARITAPREVIR\RITONAVIR
     Indication: HEPATITIS C
     Dosage: 1X2
     Route: 048
     Dates: start: 201612, end: 20170213

REACTIONS (6)
  - Sinus tachycardia [Recovering/Resolving]
  - Asthenia [Recovering/Resolving]
  - Palpitations [Recovered/Resolved]
  - Haemoglobin decreased [Recovered/Resolved]
  - Dyspnoea [Recovering/Resolving]
  - Dyslipidaemia [Unknown]

NARRATIVE: CASE EVENT DATE: 2017
